FAERS Safety Report 6421556-3 (Version None)
Quarter: 2009Q4

REPORT INFORMATION
  Report Type: 
  Country: None (occurrence: None)
  Receive Date: 20091029
  Receipt Date: 20091029
  Transmission Date: 20100525
  Serious: No
  Sender: FDA-Public Use
  Company Number: None

PATIENT
  Age: 63 Year
  Sex: Female
  Weight: 77.3 kg

DRUGS (1)
  1. FINACEA [Suspect]
     Indication: ROSACEA
     Dosage: 10/18-10/211
     Dates: start: 20091018

REACTIONS (2)
  - APPLICATION SITE BURN [None]
  - CHEMICAL BURN OF SKIN [None]
